FAERS Safety Report 22225386 (Version 5)
Quarter: 2023Q4

REPORT INFORMATION
  Report Type: Report from Study
  Country: JP (occurrence: JP)
  Receive Date: 20230418
  Receipt Date: 20231003
  Transmission Date: 20240109
  Serious: Yes (Hospitalization)
  Sender: FDA-Public Use
  Company Number: JP-REGENERON PHARMACEUTICALS, INC.-2023-052213

PATIENT
  Age: 70 Year
  Sex: Male

DRUGS (60)
  1. CEMIPLIMAB [Suspect]
     Active Substance: CEMIPLIMAB
     Indication: Lung adenocarcinoma stage IV
     Dosage: 350 MG, Q3W
     Route: 042
     Dates: start: 20230405, end: 20230502
  2. CEMIPLIMAB [Suspect]
     Active Substance: CEMIPLIMAB
     Dosage: 350 MG, Q3W
     Route: 042
     Dates: start: 20230613
  3. CARBOPLATIN [Suspect]
     Active Substance: CARBOPLATIN
     Indication: Lung adenocarcinoma stage IV
     Dosage: AUC OF 5 OR 6 MG/ML/MINUTE
     Route: 042
     Dates: start: 20230405, end: 20230502
  4. CARBOPLATIN [Suspect]
     Active Substance: CARBOPLATIN
     Dosage: AUC OF 5 OR 6 MG/ML/MINUTE
     Route: 042
     Dates: start: 20230613
  5. PEMETREXED [Suspect]
     Active Substance: PEMETREXED
     Indication: Lung adenocarcinoma stage IV
     Dosage: 500 MG/M2, Q3W
     Route: 042
     Dates: start: 20230405, end: 20230502
  6. PEMETREXED [Suspect]
     Active Substance: PEMETREXED
     Dosage: 500 MG/M2, Q3W
     Route: 042
     Dates: start: 20230613
  7. FOLIC ACID [Concomitant]
     Active Substance: FOLIC ACID
     Indication: Anaemia
     Dosage: 20 MG, BID
     Route: 048
     Dates: end: 20230403
  8. AZILSARTAN KAMEDOXOMIL [Concomitant]
     Active Substance: AZILSARTAN KAMEDOXOMIL
     Indication: Hypertension
     Dosage: 20 MG, QD
     Route: 048
     Dates: end: 20230410
  9. AMLODIPINE BESYLATE [Concomitant]
     Active Substance: AMLODIPINE BESYLATE
     Indication: Hypertension
     Dosage: 5 MG, QD
     Route: 048
     Dates: end: 20230407
  10. ASPIRIN [Concomitant]
     Active Substance: ASPIRIN
     Indication: Cerebral infarction
     Dosage: 100 MG, QD
     Route: 048
     Dates: end: 20230712
  11. TULOBUTEROL [Concomitant]
     Active Substance: TULOBUTEROL
     Indication: Dyspnoea
     Dosage: 2 MG, QD
     Route: 062
     Dates: end: 20230524
  12. BROTIZOLAM [Concomitant]
     Active Substance: BROTIZOLAM
     Indication: Sleep disorder
     Dosage: 0.25 MG, AS NECESSARY
     Route: 048
     Dates: end: 20230717
  13. LANSOPRAZOLE [Concomitant]
     Active Substance: LANSOPRAZOLE
     Indication: Gastritis
     Dosage: 30 MG, QD
     Route: 048
     Dates: end: 20230725
  14. CARBAZOCHROME SODIUM SULFONATE [Concomitant]
     Active Substance: CARBAZOCHROME SODIUM SULFONATE
     Indication: Haemoptysis
     Dosage: 90 MG, TID
     Route: 048
     Dates: start: 20230303, end: 20230725
  15. TRANEXAMIC ACID [Concomitant]
     Active Substance: TRANEXAMIC ACID
     Indication: Haemoptysis
     Dosage: 750 MG, TID
     Route: 048
     Dates: start: 20230303, end: 20230725
  16. CALONAL [Concomitant]
     Active Substance: ACETAMINOPHEN
     Indication: Tumour associated fever
     Dosage: 500 MG, AS NECESSARY
     Route: 048
     Dates: start: 20230303, end: 20230718
  17. PANVITAN HI [Concomitant]
     Indication: Prophylaxis
     Dosage: 1 G, QD
     Route: 048
     Dates: start: 20230324, end: 20230725
  18. CYANOCOBALAMIN [Concomitant]
     Active Substance: CYANOCOBALAMIN
     Indication: Prophylaxis
     Dosage: 1000 UG, Q9WK
     Route: 030
     Dates: start: 20230324, end: 20230725
  19. FERROUS CITRATE [Concomitant]
     Active Substance: FERROUS CITRATE
     Indication: Anaemia
     Dosage: 50 MG, QD
     Route: 048
     Dates: start: 20230403, end: 20230524
  20. URSODIOL [Concomitant]
     Active Substance: URSODIOL
     Indication: Blood alkaline phosphatase increased
     Dosage: 300 MG, TID
     Route: 048
     Dates: start: 20230403, end: 20230704
  21. PALONOSETRON [Concomitant]
     Active Substance: PALONOSETRON
     Indication: Prophylaxis
     Dosage: 0.75 MG, Q3W
     Route: 042
     Dates: start: 20230405, end: 20230405
  22. PALONOSETRON [Concomitant]
     Active Substance: PALONOSETRON
     Dosage: 0.75 MG, Q3W
     Route: 042
     Dates: start: 20230502, end: 20230704
  23. DEXAMETHASONE SODIUM PHOSPHATE [Concomitant]
     Active Substance: DEXAMETHASONE SODIUM PHOSPHATE
     Indication: Prophylaxis
     Dosage: 6.6 MG, Q3W
     Route: 042
     Dates: start: 20230405, end: 20230405
  24. DEXAMETHASONE SODIUM PHOSPHATE [Concomitant]
     Active Substance: DEXAMETHASONE SODIUM PHOSPHATE
     Dosage: 6.6 MG, Q3W
     Route: 042
     Dates: start: 20230502, end: 20230704
  25. DECADRON [Concomitant]
     Active Substance: DEXAMETHASONE
     Indication: Prophylaxis
     Dosage: 8 MG, TWICE EVERY 3WEEKS
     Route: 048
     Dates: start: 20230406, end: 20230407
  26. DECADRON [Concomitant]
     Active Substance: DEXAMETHASONE
     Dosage: 8 MG, TWICE EVERY 3WEEKS
     Route: 048
     Dates: start: 20230503, end: 20230706
  27. MAGNESIUM OXIDE [Concomitant]
     Active Substance: MAGNESIUM OXIDE
     Indication: Constipation
     Dosage: 990 MG, TID
     Route: 048
     Dates: start: 20230408, end: 20230510
  28. CALCIUM CHLORIDE ANHYDROUS\POTASSIUM CHLORIDE\SODIUM CHLORIDE\SODIUM L [Concomitant]
     Active Substance: CALCIUM CHLORIDE ANHYDROUS\POTASSIUM CHLORIDE\SODIUM CHLORIDE\SODIUM LACTATE
     Indication: Decreased appetite
     Dosage: 500 ML, QD
     Route: 042
     Dates: start: 20230409, end: 20230414
  29. CALCIUM CHLORIDE ANHYDROUS\POTASSIUM CHLORIDE\SODIUM CHLORIDE\SODIUM L [Concomitant]
     Active Substance: CALCIUM CHLORIDE ANHYDROUS\POTASSIUM CHLORIDE\SODIUM CHLORIDE\SODIUM LACTATE
     Dosage: 1000 ML, QD
     Route: 042
     Dates: start: 20230620, end: 20230622
  30. AMINO ACIDS\DEXTROSE\ELECTROLYTES NOS\VITAMINS [Concomitant]
     Active Substance: AMINO ACIDS\DEXTROSE\ELECTROLYTES NOS\VITAMINS
     Indication: Decreased appetite
     Dosage: 500 ML, QD
     Route: 042
     Dates: start: 20230410, end: 20230417
  31. METOCLOPRAMIDE HYDROCHLORIDE [Concomitant]
     Active Substance: METOCLOPRAMIDE HYDROCHLORIDE
     Indication: Decreased appetite
     Dosage: 5 MG, AS NECESSARY
     Route: 048
     Dates: start: 20230410, end: 20230718
  32. SENNOSIDES [Concomitant]
     Active Substance: SENNOSIDES
     Indication: Constipation
     Dosage: 24 MG, AS NECESSARY
     Route: 048
     Dates: start: 20230412, end: 20230510
  33. SODIUM BICARBONATE\SODIUM PHOSPHATE, MONOBASIC [Concomitant]
     Active Substance: SODIUM BICARBONATE\SODIUM PHOSPHATE, MONOBASIC
     Indication: Constipation
     Dosage: 1 {DF}, AS NECESSARY
     Route: 054
     Dates: start: 20230412, end: 20230510
  34. SODIUM PICOSULFATE [Concomitant]
     Active Substance: SODIUM PICOSULFATE
     Indication: Constipation
     Dosage: 10 [DRP], AS NECESSARY
     Route: 048
     Dates: start: 20230413, end: 20230510
  35. SODIUM PICOSULFATE [Concomitant]
     Active Substance: SODIUM PICOSULFATE
     Indication: Premedication
     Dosage: 10 ML
     Route: 048
     Dates: start: 20230523, end: 20230523
  36. SODIUM PICOSULFATE [Concomitant]
     Active Substance: SODIUM PICOSULFATE
     Indication: Endoscopy gastrointestinal
  37. RBC [SACCHARATED IRON OXIDE] [Concomitant]
     Indication: Anaemia
     Dosage: 2 [IU], SINGLE
     Route: 042
     Dates: start: 20230403, end: 20230403
  38. RBC [SACCHARATED IRON OXIDE] [Concomitant]
     Dosage: 4 [IU], SINGLE
     Route: 042
     Dates: start: 20230523, end: 20230523
  39. RBC [SACCHARATED IRON OXIDE] [Concomitant]
     Dosage: 6 [IU], SINGLE
     Route: 042
     Dates: start: 20230609, end: 20230609
  40. BETAMETHASONE BUTYRATE PROPIONATE [Concomitant]
     Active Substance: BETAMETHASONE BUTYRATE PROPIONATE
     Indication: Pruritus
     Dosage: ADEQUATE DOSE, BID
     Route: 062
     Dates: start: 20230523, end: 20230530
  41. BETAMETHASONE BUTYRATE PROPIONATE [Concomitant]
     Active Substance: BETAMETHASONE BUTYRATE PROPIONATE
     Dosage: ADEQUATE DOSE, BID
     Route: 062
     Dates: start: 20230606
  42. HEPARINOID [Concomitant]
     Indication: Pruritus
     Dosage: ADEQUATE DOSE, BID
     Route: 062
     Dates: start: 20230523
  43. DIPHENHYDRAMINE [Concomitant]
     Active Substance: DIPHENHYDRAMINE
     Indication: Pruritus
     Dosage: ADEQUATE DOSE, AS NECESSARY
     Route: 062
     Dates: start: 20230508, end: 20230523
  44. MAGNESIUM CITRATE [Concomitant]
     Active Substance: MAGNESIUM CITRATE
     Indication: Premedication
     Dosage: 50 MG, SINGLE
     Route: 048
     Dates: start: 20230523, end: 20230523
  45. MAGNESIUM CITRATE [Concomitant]
     Active Substance: MAGNESIUM CITRATE
     Indication: Endoscopy gastrointestinal
  46. EPINASTINE HYDROCHLORIDE [Concomitant]
     Active Substance: EPINASTINE HYDROCHLORIDE
     Indication: Pruritus
     Dosage: 20 MG, QD
     Route: 048
     Dates: start: 20230524, end: 20230529
  47. BIFIDOBACTERIUM LONGUM [Concomitant]
     Active Substance: BIFIDOBACTERIUM LONGUM
     Indication: Colitis
     Dosage: 3 TABLET, TID
     Route: 048
     Dates: start: 20230524, end: 20230530
  48. ALUMINUM SILICATE [Concomitant]
     Active Substance: ALUMINUM SILICATE
     Indication: Diarrhoea
     Dosage: 3 G, TID
     Route: 048
     Dates: start: 20230524, end: 20230527
  49. CLOBETASOL PROPIONATE [Concomitant]
     Active Substance: CLOBETASOL PROPIONATE
     Indication: Pruritus
     Dosage: ADEQUATE DOSE, BID
     Route: 062
     Dates: start: 20230530, end: 20230606
  50. BILASTINE [Concomitant]
     Active Substance: BILASTINE
     Indication: Pruritus
     Dosage: 20 MG, QD
     Route: 048
     Dates: start: 20230530, end: 20230724
  51. BUTYRIC ACID [Concomitant]
     Active Substance: BUTYRIC ACID
     Indication: Colitis
     Dosage: 3 TABLET, TID
     Route: 048
     Dates: start: 20230530, end: 20230704
  52. ALBUMIN TANNATE [Concomitant]
     Active Substance: ALBUMIN TANNATE
     Indication: Colitis
     Dosage: 3 G, TID
     Route: 048
     Dates: start: 20230613, end: 20230704
  53. CROTAMITON [Concomitant]
     Active Substance: CROTAMITON
     Indication: Pruritus
     Dosage: ADEQUATE DOSE, AS NECESSARY
     Route: 062
     Dates: start: 20230606
  54. SULFAMETHOXAZOLE AND TRIMETHOPRIM [Concomitant]
     Active Substance: SULFAMETHOXAZOLE\TRIMETHOPRIM
     Indication: Prophylaxis
     Dosage: 1 TABLET, QD
     Route: 048
     Dates: start: 20230620, end: 20230725
  55. BETAMETHASONE [Concomitant]
     Active Substance: BETAMETHASONE
     Indication: Prophylaxis
     Dosage: 1 MG, QD
     Route: 048
     Dates: start: 20230610, end: 20230711
  56. SCOPOLAMINE [Concomitant]
     Active Substance: SCOPOLAMINE
     Indication: Premedication
     Dosage: 10 MG, OTO
     Route: 030
     Dates: start: 20230524, end: 20230524
  57. SCOPOLAMINE [Concomitant]
     Active Substance: SCOPOLAMINE
     Indication: Endoscopy gastrointestinal
  58. ANAMORELIN HYDROCHLORIDE [Concomitant]
     Active Substance: ANAMORELIN HYDROCHLORIDE
     Indication: Decreased appetite
     Dosage: 100 MG, QD
     Route: 048
     Dates: start: 20230630, end: 20230719
  59. ALFACALCIDOL [Concomitant]
     Active Substance: ALFACALCIDOL
     Indication: Osteoporosis prophylaxis
     Dosage: 0.5 MG, QD
     Route: 048
     Dates: start: 20230718, end: 20230725
  60. CEPHALEXIN [Concomitant]
     Active Substance: CEPHALEXIN
     Indication: Prophylaxis
     Dosage: 1000 MG, QID
     Route: 048
     Dates: start: 20230718, end: 20230720

REACTIONS (7)
  - Decreased appetite [Recovering/Resolving]
  - Pyrexia [Recovered/Resolved]
  - Pruritus [Not Recovered/Not Resolved]
  - Pruritus [Not Recovered/Not Resolved]
  - Diarrhoea [Recovered/Resolved]
  - Weight decreased [Not Recovered/Not Resolved]
  - Decreased appetite [Recovering/Resolving]

NARRATIVE: CASE EVENT DATE: 20230410
